FAERS Safety Report 12223113 (Version 2)
Quarter: 2017Q3

REPORT INFORMATION
  Report Type: Spontaneous
  Country: US (occurrence: US)
  Receive Date: 20160330
  Receipt Date: 20170726
  Transmission Date: 20171127
  Serious: Yes (Life-Threatening, Hospitalization, Other)
  Sender: FDA-Public Use
  Company Number: PHHY2016US040437

PATIENT
  Age: 4 Year
  Sex: Female

DRUGS (1)
  1. CARBAMAZEPINE. [Suspect]
     Active Substance: CARBAMAZEPINE
     Indication: EPILEPSY
     Dosage: UNK (REPEATED SEVERAL DOSES)
     Route: 065

REACTIONS (9)
  - Acute hepatic failure [Recovered/Resolved]
  - Thrombocytopenia [Unknown]
  - Somnolence [Unknown]
  - Pyrexia [Unknown]
  - Vomiting [Unknown]
  - Anticonvulsant drug level increased [Unknown]
  - Intentional overdose [Unknown]
  - Hepatic encephalopathy [Unknown]
  - Drug-induced liver injury [Recovered/Resolved]
